FAERS Safety Report 4886356-4 (Version None)
Quarter: 2006Q1

REPORT INFORMATION
  Report Type: 
  Country: None (occurrence: None)
  Receive Date: 20060120
  Receipt Date: 20050930
  Transmission Date: 20060701
  Serious: Yes (Hospitalization)
  Sender: FDA-Public Use
  Company Number: US-MERCK-0510USA00913

PATIENT
  Age: 76 Year
  Sex: Male
  Weight: 90 kg

DRUGS (3)
  1. VIOXX [Suspect]
     Indication: BACK PAIN
     Route: 048
     Dates: start: 20001017, end: 20020101
  2. VIOXX [Suspect]
     Indication: MUSCULOSKELETAL CHEST PAIN
     Route: 048
     Dates: start: 20001017, end: 20020101
  3. TYLENOL (CAPLET) [Concomitant]
     Route: 065

REACTIONS (10)
  - ANGINA PECTORIS [None]
  - ARRHYTHMIA [None]
  - BACK PAIN [None]
  - CARDIOVASCULAR DISORDER [None]
  - CEREBROVASCULAR ACCIDENT [None]
  - MYOCARDIAL INFARCTION [None]
  - ORGAN FAILURE [None]
  - POLYTRAUMATISM [None]
  - PULMONARY EMBOLISM [None]
  - THROMBOSIS [None]
